FAERS Safety Report 14205442 (Version 3)
Quarter: 2018Q1

REPORT INFORMATION
  Report Type: Spontaneous
  Country: IL (occurrence: IL)
  Receive Date: 20171120
  Receipt Date: 20180131
  Transmission Date: 20180508
  Serious: Yes (Hospitalization)
  Sender: FDA-Public Use
  Company Number: IL-SA-2017SA196642

PATIENT
  Age: 74 Year
  Sex: Female

DRUGS (12)
  1. LANTUS [Suspect]
     Active Substance: INSULIN GLARGINE
     Dosage: DOSE: 18,20 OR 25 UNITS AS ADVISED BY PHYSICIAN DOSE:12 UNIT(S)
     Route: 051
     Dates: start: 2013
  2. APIDRA [Suspect]
     Active Substance: INSULIN GLULISINE
     Dosage: DOSE:4 UNIT(S)
     Route: 058
     Dates: start: 20171002, end: 20171002
  3. MEGEXIA [Suspect]
     Active Substance: MEGESTROL ACETATE
     Route: 065
     Dates: start: 2017
  4. NOVONORM [Suspect]
     Active Substance: REPAGLINIDE
     Route: 065
  5. SOLOSTAR [Suspect]
     Active Substance: DEVICE
     Dates: start: 20171002
  6. LANTUS [Suspect]
     Active Substance: INSULIN GLARGINE
     Dosage: DOSE:20 UNIT(S)
     Route: 051
  7. LANTUS [Suspect]
     Active Substance: INSULIN GLARGINE
     Dosage: DOSE: 18,20 OR 25 UNITS AS ADVISED BY PHYSICIAN
     Route: 051
  8. APIDRA [Suspect]
     Active Substance: INSULIN GLULISINE
     Route: 058
     Dates: start: 20171003
  9. LANTUS [Suspect]
     Active Substance: INSULIN GLARGINE
     Dosage: DOSE:18 UNIT(S)
     Route: 051
  10. TOUJEO [Suspect]
     Active Substance: INSULIN GLARGINE
     Dosage: DOSE:18 UNIT(S)
     Route: 051
     Dates: start: 20171002
  11. APIDRA [Suspect]
     Active Substance: INSULIN GLULISINE
     Dosage: DOSE:18 UNIT(S)
     Route: 058
     Dates: start: 20170920
  12. GLUCOPHAGE [Suspect]
     Active Substance: METFORMIN HYDROCHLORIDE
     Route: 065

REACTIONS (6)
  - Bacterial test [Recovering/Resolving]
  - Blood glucose increased [Recovered/Resolved]
  - Chills [Recovered/Resolved]
  - Blood glucose abnormal [Recovered/Resolved]
  - Blood glucose decreased [Recovered/Resolved]
  - Malaise [Recovered/Resolved]

NARRATIVE: CASE EVENT DATE: 20171203
